FAERS Safety Report 23991398 (Version 1)
Quarter: 2024Q2

REPORT INFORMATION
  Report Type: Spontaneous
  Country: US (occurrence: US)
  Receive Date: 20240619
  Receipt Date: 20240619
  Transmission Date: 20240716
  Serious: Yes (Life-Threatening)
  Sender: FDA-Public Use
  Company Number: US-COOLA-2024-US-032879

PATIENT
  Age: 60 Year
  Sex: Female

DRUGS (4)
  1. BARE REPUBLIC SPF 50 MINERAL SPORT SUNSCREEN [Suspect]
     Active Substance: TITANIUM DIOXIDE\ZINC OXIDE
     Indication: Product used for unknown indication
     Dosage: 1 APPLICATION, ONE TIME ONLY
     Route: 061
     Dates: start: 20240609, end: 20240609
  2. XOLAIR [Concomitant]
     Active Substance: OMALIZUMAB
  3. ANTIHISTAMINES NOS [Concomitant]
     Active Substance: ANTIHISTAMINES NOS
  4. unspecified pituitary hormones [Concomitant]

REACTIONS (10)
  - Swelling of eyelid [Recovering/Resolving]
  - Anaphylactic reaction [Recovered/Resolved]
  - Pharyngeal swelling [Unknown]
  - Dyspnoea [Unknown]
  - Rash [Recovered/Resolved]
  - Erythema [Recovering/Resolving]
  - Pruritus [Recovering/Resolving]
  - Pain [Recovering/Resolving]
  - Chest discomfort [Recovering/Resolving]
  - Nasal congestion [Recovering/Resolving]

NARRATIVE: CASE EVENT DATE: 20240609
